FAERS Safety Report 10073608 (Version 1)
Quarter: 2014Q2

REPORT INFORMATION
  Report Type: Spontaneous
  Country: BR (occurrence: BR)
  Receive Date: 20140411
  Receipt Date: 20140411
  Transmission Date: 20141212
  Serious: Yes (Hospitalization, Other)
  Sender: FDA-Public Use
  Company Number: BR-PFIZER INC-2014098336

PATIENT
  Age: 63 Year
  Sex: Female
  Weight: 72 kg

DRUGS (4)
  1. CHAMPIX [Suspect]
     Dosage: UNK
     Dates: start: 2011
  2. CHAMPIX [Suspect]
     Dosage: MAINTENANCE KIT
     Dates: start: 2013, end: 2013
  3. CHAMPIX [Suspect]
     Dosage: UNK
     Dates: start: 2013
  4. ZENHALE [Concomitant]

REACTIONS (5)
  - Venous occlusion [Recovered/Resolved]
  - Angina pectoris [Unknown]
  - Emphysema [Unknown]
  - Drug dispensing error [Unknown]
  - Liver disorder [Unknown]
